FAERS Safety Report 7304037-4 (Version None)
Quarter: 2011Q1

REPORT INFORMATION
  Report Type: 
  Country: None (occurrence: None)
  Receive Date: 20110221
  Receipt Date: 20110214
  Transmission Date: 20110831
  Serious: Yes (Hospitalization)
  Sender: FDA-Public Use
  Company Number: US-PFIZER INC-US-WYE-H17493710

PATIENT
  Sex: Female
  Weight: 115.7 kg

DRUGS (8)
  1. NEURONTIN [Suspect]
     Indication: DEPRESSION
     Dosage: 300 MG, 2X/DAY
     Dates: start: 20100801, end: 20100801
  2. NEURONTIN [Suspect]
     Indication: ANXIETY
     Dosage: 100 MG, 3X/DAY
     Dates: start: 20100801, end: 20100801
  3. KLONOPIN [Concomitant]
     Indication: HYPERTENSION
     Dosage: 25 MG, 2X/DAY
  4. EFFEXOR XR [Suspect]
     Indication: DEPRESSION
     Dosage: 75 MG, 1X/DAY
     Route: 048
     Dates: start: 20100801
  5. NEURONTIN [Suspect]
     Dosage: 300 MG DAILY THEN 600 MG AT NIGHT
     Dates: start: 20100801, end: 20100901
  6. NEURONTIN [Suspect]
     Dosage: TAPERED OFF TO 300 MG 3 X'S DAILY FOR 2 DAYS THEN 300 MG 1X1 DAY (AT NIGHT) FOR 2 MORE DAYS
     Dates: start: 20100901, end: 20100911
  7. EFFEXOR XR [Suspect]
     Indication: ANXIETY
     Dosage: 37.5 MG, 1X/DAY
     Route: 048
     Dates: start: 20050101, end: 20100801
  8. LOPRESSOR [Concomitant]
     Dosage: 2 MG, UNK

REACTIONS (8)
  - INSOMNIA [None]
  - ANXIETY [None]
  - DEPRESSION [None]
  - GAIT DISTURBANCE [None]
  - INCONTINENCE [None]
  - TINNITUS [None]
  - CONDITION AGGRAVATED [None]
  - DRUG WITHDRAWAL SYNDROME [None]
